FAERS Safety Report 13276356 (Version 1)
Quarter: 2017Q1

REPORT INFORMATION
  Report Type: Spontaneous
  Country: US (occurrence: US)
  Receive Date: 20170227
  Receipt Date: 20170227
  Transmission Date: 20170428
  Serious: Yes (Hospitalization)
  Sender: FDA-Public Use
  Company Number: None

PATIENT
  Age: 58 Year
  Sex: Male
  Weight: 85 kg

DRUGS (1)
  1. LITHIUM. [Suspect]
     Active Substance: LITHIUM
     Indication: BIPOLAR I DISORDER
     Route: 048
     Dates: start: 20160712, end: 20160726

REACTIONS (4)
  - Dizziness [None]
  - Acute kidney injury [None]
  - Confusional state [None]
  - Diarrhoea [None]

NARRATIVE: CASE EVENT DATE: 20160726
